FAERS Safety Report 9209675 (Version 3)
Quarter: 2014Q2

REPORT INFORMATION
  Report Type: Spontaneous
  Country: US (occurrence: US)
  Receive Date: 20130404
  Receipt Date: 20140408
  Transmission Date: 20141212
  Serious: Yes (Other)
  Sender: FDA-Public Use
  Company Number: US-BAYER-2013-040301

PATIENT
  Age: 26 Year
  Sex: Female

DRUGS (8)
  1. YASMIN [Suspect]
     Dosage: UNK
  2. YAZ [Suspect]
     Dosage: UNK
  3. LEXAPRO [Concomitant]
     Dosage: 10 MG, UNK
  4. NEXIUM [Concomitant]
     Dosage: 40 MG, UNK
  5. PROMETHAZINE [Concomitant]
     Dosage: 25 MG, UNK
  6. DICYCLOMINE [Concomitant]
     Dosage: 20 MG, UNK
  7. BENTYL [Concomitant]
  8. BENTYL [Concomitant]
     Dosage: 40 MG, UNK

REACTIONS (6)
  - Gallbladder injury [None]
  - Cholecystitis [None]
  - Injury [None]
  - Pain [None]
  - Anxiety [None]
  - Fear [None]
